FAERS Safety Report 25414922 (Version 2)
Quarter: 2025Q3

REPORT INFORMATION
  Report Type: Report from Study
  Country: VN (occurrence: VN)
  Receive Date: 20250609
  Receipt Date: 20250718
  Transmission Date: 20251020
  Serious: Yes (Hospitalization)
  Sender: MERCK SHARP & DOHME LLC
  Company Number: VN-ASTRAZENECA-202505GLO023764VN

PATIENT
  Age: 44 Year
  Sex: Female
  Weight: 60 kg

DRUGS (10)
  1. PEMBROLIZUMAB [Suspect]
     Active Substance: PEMBROLIZUMAB
     Indication: Breast cancer
     Dosage: 200 MILLIGRAM, Q3W
     Route: 042
     Dates: start: 20250205, end: 20250702
  2. CARBOPLATIN [Suspect]
     Active Substance: CARBOPLATIN
     Indication: Breast cancer
     Dosage: 5 AUC, Q3W
     Route: 042
     Dates: start: 20250205, end: 20250409
  3. PACLITAXEL [Suspect]
     Active Substance: PACLITAXEL
     Indication: Breast cancer
     Dosage: 80 MG/M2, ONCE EVERY 1 WK
     Route: 042
     Dates: start: 20250205, end: 20250423
  4. PANTOPRAZOLE SODIUM [Concomitant]
     Active Substance: PANTOPRAZOLE SODIUM
     Indication: Premedication
     Dosage: 40 MG, SINGLE
     Route: 042
     Dates: start: 20250305, end: 20250305
  5. EPIRUBICIN [Suspect]
     Active Substance: EPIRUBICIN
     Indication: Breast cancer
     Dosage: 90 MG/M2, ONCE EVERY 3 WK
     Route: 042
     Dates: start: 20250429, end: 20250702
  6. RABELOC [RABEPRAZOLE SODIUM] [Concomitant]
     Indication: Premedication
     Dosage: 20 MG, ONCE EVERY 1 WK
     Route: 042
     Dates: start: 20250205, end: 20250226
  7. CYCLOPHOSPHAMIDE [Suspect]
     Active Substance: CYCLOPHOSPHAMIDE
     Indication: Breast cancer
     Dosage: 600 MILLIGRAM/SQ. METER, Q3W
     Route: 042
     Dates: start: 20250429, end: 20250702
  8. VINPRAZOL [Concomitant]
     Indication: Premedication
     Dosage: 20 MG, ONCE EVERY 1 WK
     Route: 042
     Dates: start: 20250312
  9. PIPOLPHEN [Concomitant]
     Indication: Premedication
     Dosage: 50 MG, ONCE EVERY 1 WK
     Route: 030
     Dates: start: 20250205
  10. AKYNZEO [FOSNETUPITANT CHLORIDE HYDROCHLORIDE;PALONOSETRON HYDROCHL... [Concomitant]
     Indication: Premedication
     Dosage: 1 DOSAGE FORM, ONCE EVERY 1 WK
     Route: 065
     Dates: start: 20250205

REACTIONS (1)
  - Anaemia [Recovered/Resolved]

NARRATIVE: CASE EVENT DATE: 20250514
